FAERS Safety Report 16869560 (Version 1)
Quarter: 2019Q3

REPORT INFORMATION
  Report Type: Spontaneous
  Country: US (occurrence: US)
  Receive Date: 20190930
  Receipt Date: 20190930
  Transmission Date: 20191005
  Serious: Yes (Other)
  Sender: FDA-Public Use
  Company Number: US-PFIZER INC-2019407642

PATIENT
  Age: 73 Year
  Sex: Male

DRUGS (2)
  1. HEPARIN SODIUM. [Suspect]
     Active Substance: HEPARIN SODIUM
     Dosage: UNK
     Route: 042
  2. PROTAMINE [Interacting]
     Active Substance: PROTAMINE
     Indication: PROCOAGULANT THERAPY
     Dosage: 40 MG, UNK

REACTIONS (3)
  - Electrocardiogram ST segment elevation [Recovered/Resolved]
  - Drug interaction [Unknown]
  - Hypotension [Recovered/Resolved]
